FAERS Safety Report 23231303 (Version 1)
Quarter: 2023Q4

REPORT INFORMATION
  Report Type: Report from Study
  Country: US (occurrence: US)
  Receive Date: 20231127
  Receipt Date: 20231127
  Transmission Date: 20240110
  Serious: Yes (Other)
  Sender: FDA-Public Use
  Company Number: US-JNJFOC-20231153571

PATIENT
  Age: 66 Year
  Sex: Female
  Weight: 92.162 kg

DRUGS (10)
  1. SPRAVATO [Suspect]
     Active Substance: ESKETAMINE
     Indication: Depression
     Dosage: 56 MG, 1 DOSE
     Dates: start: 20230927, end: 20230927
  2. SPRAVATO [Suspect]
     Active Substance: ESKETAMINE
     Indication: Generalised anxiety disorder
     Dosage: 84 MG, 2 DOSES
     Dates: start: 20230929, end: 20231002
  3. SPRAVATO [Suspect]
     Active Substance: ESKETAMINE
     Indication: Panic disorder
     Dosage: 56 MG, 1 DOSE
     Dates: start: 20231016, end: 20231016
  4. SPRAVATO [Suspect]
     Active Substance: ESKETAMINE
     Dosage: 84 MG, 2 DOSES
     Dates: start: 20231020, end: 20231024
  5. SPRAVATO [Suspect]
     Active Substance: ESKETAMINE
     Dosage: 56 MG, 1 DOSE
     Dates: start: 20231027, end: 20231027
  6. SPRAVATO [Suspect]
     Active Substance: ESKETAMINE
     Dosage: RECENT DOSE
     Dates: start: 20231113, end: 20231113
  7. COREG [Suspect]
     Active Substance: CARVEDILOL
     Indication: Atrial fibrillation
     Route: 065
     Dates: start: 2023
  8. COREG [Suspect]
     Active Substance: CARVEDILOL
     Indication: Hypertension
  9. HYDROXYZINE [Concomitant]
     Active Substance: HYDROXYZINE HYDROCHLORIDE
     Indication: Anxiety
     Dosage: CHANGED TO 2 TABLETS UP TO 4 TIMES A DAY IN 2023
  10. VIIBRYD [Concomitant]
     Active Substance: VILAZODONE HYDROCHLORIDE

REACTIONS (6)
  - Suicidal ideation [Unknown]
  - Cardiac disorder [Not Recovered/Not Resolved]
  - Mood altered [Not Recovered/Not Resolved]
  - Panic attack [Not Recovered/Not Resolved]
  - Anxiety [Not Recovered/Not Resolved]
  - Headache [Unknown]

NARRATIVE: CASE EVENT DATE: 20230101
